FAERS Safety Report 5080050-5 (Version None)
Quarter: 2006Q3

REPORT INFORMATION
  Report Type: 
  Country: None (occurrence: None)
  Receive Date: 20060815
  Receipt Date: 20060804
  Transmission Date: 20061208
  Serious: Yes (Hospitalization)
  Sender: FDA-Public Use
  Company Number: JP-JNJFOC-20060801229

PATIENT
  Sex: Female

DRUGS (5)
  1. ITRACONAZOLE [Suspect]
     Indication: FUNGAL SKIN INFECTION
     Route: 048
     Dates: start: 20060721, end: 20060728
  2. CARDENALIN [Concomitant]
     Indication: HYPERTENSION
     Route: 048
  3. SELBEX [Concomitant]
     Indication: GASTRITIS
     Route: 048
  4. BUFFERIN [Concomitant]
     Indication: VASCULAR DEMENTIA
     Route: 048
  5. MYSLEE [Concomitant]
     Indication: INSOMNIA
     Route: 048

REACTIONS (4)
  - CONVULSION [None]
  - HYPERAMMONAEMIA [None]
  - PYREXIA [None]
  - STATUS EPILEPTICUS [None]
